FAERS Safety Report 24633925 (Version 8)
Quarter: 2025Q2

REPORT INFORMATION
  Report Type: Report from Study
  Country: US (occurrence: US)
  Receive Date: 20241118
  Receipt Date: 20250617
  Transmission Date: 20250716
  Serious: Yes (Other)
  Sender: SUNOVION
  Company Number: US-SUMITOMO PHARMA SWITZERLAND GMBH-2024SPA005011

PATIENT

DRUGS (5)
  1. ORGOVYX [Suspect]
     Active Substance: RELUGOLIX
     Indication: Prostate cancer
     Route: 048
  2. ORGOVYX [Suspect]
     Active Substance: RELUGOLIX
     Dosage: 120 MG, QD
     Route: 048
     Dates: start: 20241102
  3. Balance of nature veggies [Concomitant]
     Route: 065
  4. Balance of nature fruits [Concomitant]
     Route: 065
  5. VITAMINS [Concomitant]
     Active Substance: VITAMINS
     Route: 065

REACTIONS (14)
  - Neuropathy peripheral [Unknown]
  - Nasopharyngitis [Unknown]
  - Anosmia [Unknown]
  - Nocturia [Unknown]
  - Ageusia [Unknown]
  - Gait inability [Unknown]
  - Pain in extremity [Unknown]
  - Hot flush [Unknown]
  - Weight increased [Unknown]
  - Fatigue [Unknown]
  - Arthritis [Unknown]
  - Hyperhidrosis [Unknown]
  - Feeling hot [Unknown]
  - Middle insomnia [Unknown]

NARRATIVE: CASE EVENT DATE: 20241101
